FAERS Safety Report 10612627 (Version 1)
Quarter: 2014Q4

REPORT INFORMATION
  Report Type: Spontaneous
  Country: HU (occurrence: HU)
  Receive Date: 20141127
  Receipt Date: 20141127
  Transmission Date: 20150529
  Serious: Yes (Life-Threatening, Hospitalization, Other)
  Sender: FDA-Public Use
  Company Number: HU-009507513-1411HUN010854

PATIENT
  Age: 34 Year
  Sex: Male
  Weight: 100 kg

DRUGS (8)
  1. FOLIC ACID. [Concomitant]
     Active Substance: FOLIC ACID
  2. AZI SANDOZ [Concomitant]
     Indication: PNEUMONIA
     Dosage: 500 MG, QD
     Dates: start: 201411, end: 20141116
  3. AVELOX [Concomitant]
     Active Substance: MOXIFLOXACIN HYDROCHLORIDE
     Indication: PNEUMONIA
     Dosage: 400 MG, UNK
     Dates: start: 201411, end: 20141110
  4. MILURIT [Concomitant]
     Active Substance: ALLOPURINOL
     Indication: HYPERURICAEMIA
     Dosage: 300 MG, QD
  5. ANTIACID (ALUMINUM HYDROXIDE (+) MAGNESIUM HYDROXIDE) [Concomitant]
     Indication: GASTROOESOPHAGEAL REFLUX DISEASE
  6. PEGINTRON [Suspect]
     Active Substance: PEGINTERFERON ALFA-2B
     Indication: CHRONIC HEPATITIS C
     Dosage: 150 MICROGRAM, QW, 4TH CYCLE
     Route: 058
     Dates: start: 20140226, end: 201411
  7. REBETOL [Suspect]
     Active Substance: RIBAVIRIN
     Indication: CHRONIC HEPATITIS C
     Dosage: 800 MG, QD. 2X 2 CAPSULES/DAY
     Route: 048
     Dates: start: 20140226, end: 201411
  8. MEDROL [Concomitant]
     Active Substance: METHYLPREDNISOLONE
     Indication: PNEUMONIA
     Dosage: 32 MG, UNK
     Dates: start: 201411, end: 20141110

REACTIONS (1)
  - Pulmonary embolism [Recovering/Resolving]

NARRATIVE: CASE EVENT DATE: 20141118
